FAERS Safety Report 7411340-6 (Version None)
Quarter: 2011Q2

REPORT INFORMATION
  Report Type: 
  Country: None (occurrence: None)
  Receive Date: 20110413
  Receipt Date: 20110405
  Transmission Date: 20111010
  Serious: Yes (Other)
  Sender: FDA-Public Use
  Company Number: US-JNJFOC-20110404416

PATIENT
  Age: 52 Year
  Sex: Female

DRUGS (2)
  1. LEVAQUIN [Suspect]
     Route: 048
  2. LEVAQUIN [Suspect]
     Indication: CYSTITIS
     Route: 042

REACTIONS (2)
  - ARTHRITIS [None]
  - TENDONITIS [None]
